FAERS Safety Report 5285260-X (Version None)
Quarter: 2007Q1

REPORT INFORMATION
  Report Type: 
  Country: None (occurrence: None)
  Receive Date: 20070328
  Receipt Date: 20070314
  Transmission Date: 20070707
  Serious: Yes (Death, Life-Threatening)
  Sender: FDA-Public Use
  Company Number: A-JP2007-14485

PATIENT
  Age: 72 Year
  Sex: Female
  Weight: 51 kg

DRUGS (12)
  1. TRACLEER [Suspect]
     Indication: PULMONARY HYPERTENSION
     Dosage: SEE IMAGE
     Route: 048
     Dates: start: 20050812, end: 20050908
  2. TRACLEER [Suspect]
     Indication: PULMONARY HYPERTENSION
     Dosage: SEE IMAGE
     Route: 048
     Dates: start: 20050909, end: 20050920
  3. TRACLEER [Suspect]
     Indication: PULMONARY HYPERTENSION
     Dosage: SEE IMAGE
     Route: 048
     Dates: start: 20050921, end: 20051005
  4. TRACLEER [Suspect]
     Indication: PULMONARY HYPERTENSION
     Dosage: SEE IMAGE
     Route: 048
     Dates: start: 20051006, end: 20051016
  5. TRACLEER [Suspect]
     Indication: PULMONARY HYPERTENSION
     Dosage: SEE IMAGE
     Route: 048
     Dates: start: 20051017, end: 20051023
  6. BERAPROST SODIUM (BERAPROST SODIUM) [Concomitant]
  7. WARFARIN SODIUM [Concomitant]
  8. FUROSEMIDE [Concomitant]
  9. LOSARTAN POSTASSIUM [Concomitant]
  10. DILTIAZEM HYDROCHLORIDE [Concomitant]
  11. OXYGEN (OXYGEN) [Concomitant]
  12. EPOPROSTENOL SODIUM [Concomitant]

REACTIONS (8)
  - ALANINE AMINOTRANSFERASE INCREASED [None]
  - ASPARTATE AMINOTRANSFERASE INCREASED [None]
  - BRAIN NATRIURETIC PEPTIDE INCREASED [None]
  - CARDIAC FAILURE [None]
  - CONDITION AGGRAVATED [None]
  - HEPATIC FUNCTION ABNORMAL [None]
  - INTERSTITIAL LUNG DISEASE [None]
  - PULMONARY HYPERTENSION [None]
